FAERS Safety Report 9313371 (Version 1)
Quarter: 2013Q2

REPORT INFORMATION
  Report Type: Spontaneous
  Country: US (occurrence: US)
  Receive Date: 20130528
  Receipt Date: 20130528
  Transmission Date: 20140414
  Serious: No
  Sender: FDA-Public Use
  Company Number: US-ABBOTT-13P-163-1050990-00

PATIENT
  Age: 57 Year
  Sex: Male
  Weight: 177.06 kg

DRUGS (4)
  1. ANDROGEL 1.62% [Suspect]
     Indication: WEIGHT DECREASED
     Dosage: 2 PUMPS DAILY
     Dates: start: 2012
  2. ANDROGEL 1.62% [Suspect]
     Dosage: 1 PERCENT
     Dates: start: 201203
  3. LISINOPRIL [Concomitant]
     Indication: BLOOD PRESSURE
  4. SPIRONOLACTONE [Concomitant]
     Indication: BLOOD PRESSURE

REACTIONS (2)
  - Weight loss poor [Not Recovered/Not Resolved]
  - Off label use [Unknown]
